FAERS Safety Report 4845180-9 (Version None)
Quarter: 2005Q4

REPORT INFORMATION
  Report Type: 
  Country: None (occurrence: None)
  Receive Date: 20051205
  Receipt Date: 20051014
  Transmission Date: 20060501
  Serious: Yes (Hospitalization)
  Sender: FDA-Public Use
  Company Number: JP-ROCHE-421227

PATIENT
  Age: 66 Year
  Sex: Male

DRUGS (3)
  1. PANALDINE [Suspect]
     Indication: CORONARY ARTERY SURGERY
     Dosage: OTHER INDICATION: ANGINA PECTORIS.
     Route: 048
     Dates: start: 20050824, end: 20050904
  2. BUFFERIN [Concomitant]
     Dosage: GENERIC NAME REPORTED AS ACETYLSALICYLIC ACID + ALUMINIUM GLYCINATE. OTHER INDICATIONS : ANGINA PEC+
     Route: 048
     Dates: start: 20050723, end: 20050904
  3. MUCOSTA [Concomitant]
     Route: 048
     Dates: start: 20050824, end: 20050902

REACTIONS (6)
  - CONJUNCTIVAL HYPERAEMIA [None]
  - ERYTHEMA [None]
  - EYE DISCHARGE [None]
  - PURPURA [None]
  - PYREXIA [None]
  - STEVENS-JOHNSON SYNDROME [None]
